FAERS Safety Report 25462445 (Version 1)
Quarter: 2025Q2

REPORT INFORMATION
  Report Type: Spontaneous
  Country: DE (occurrence: DE)
  Receive Date: 20250620
  Receipt Date: 20250620
  Transmission Date: 20250717
  Serious: No
  Sender: MYLAN
  Company Number: DE-MYLANLABS-2025M1050022

PATIENT
  Sex: Female

DRUGS (1)
  1. EPINEPHRINE [Suspect]
     Active Substance: EPINEPHRINE
     Indication: Product used for unknown indication

REACTIONS (3)
  - Wrong device used [Unknown]
  - Wrong technique in product usage process [Unknown]
  - Device failure [Unknown]
